FAERS Safety Report 4405337-8 (Version None)
Quarter: 2004Q3

REPORT INFORMATION
  Report Type: 
  Country: None (occurrence: None)
  Receive Date: 20040715
  Receipt Date: 20040708
  Transmission Date: 20050211
  Serious: Yes (Hospitalization)
  Sender: FDA-Public Use
  Company Number: 2004SE03889

PATIENT
  Age: 42 Year
  Sex: Male
  Weight: 106 kg

DRUGS (4)
  1. SEROQUEL [Suspect]
     Indication: PSYCHOTIC DISORDER
     Dosage: 200-400 MG
     Dates: start: 20030101, end: 20040310
  2. SEROQUEL [Suspect]
     Indication: PSYCHOTIC DISORDER
     Dosage: 100 MG DAILY; PO
     Route: 048
     Dates: start: 20040329, end: 20040410
  3. SERENASE [Concomitant]
  4. SEROXAT [Concomitant]

REACTIONS (1)
  - HEPATITIS [None]
